FAERS Safety Report 25779689 (Version 1)
Quarter: 2025Q3

REPORT INFORMATION
  Report Type: Spontaneous
  Country: JP (occurrence: JP)
  Receive Date: 20250909
  Receipt Date: 20250909
  Transmission Date: 20251021
  Serious: Yes (Death, Hospitalization, Other)
  Sender: MERCK SHARP & DOHME LLC
  Company Number: JP-009507513-2291541

PATIENT
  Age: 54 Year
  Sex: Female

DRUGS (2)
  1. KEYTRUDA [Suspect]
     Active Substance: PEMBROLIZUMAB
     Indication: Uterine cancer
     Dosage: 200MG ONCE EVERY 3 WEEKS, IV DRIP
     Route: 041
     Dates: start: 20250403, end: 20250514
  2. LENVIMA [Suspect]
     Active Substance: LENVATINIB
     Indication: Uterine cancer
     Route: 048
     Dates: start: 20250403, end: 20250507

REACTIONS (15)
  - Disseminated intravascular coagulation [Fatal]
  - Interstitial lung disease [Unknown]
  - Encephalitis [Unknown]
  - Hypothyroidism [Unknown]
  - Blood pressure decreased [Unknown]
  - Fall [Unknown]
  - Encephalitis autoimmune [Recovered/Resolved]
  - Malignant neoplasm progression [Fatal]
  - Pleural effusion [Unknown]
  - Bone marrow infiltration [Unknown]
  - Discoloured vomit [Unknown]
  - Mouth breathing [Unknown]
  - Oedema [Unknown]
  - Dyspnoea [Recovered/Resolved]
  - Pyelonephritis [Recovering/Resolving]

NARRATIVE: CASE EVENT DATE: 20250101
